FAERS Safety Report 9848691 (Version 1)
Quarter: 2014Q1

REPORT INFORMATION
  Report Type: Spontaneous
  Country: US (occurrence: None)
  Receive Date: 20140127
  Receipt Date: 20140127
  Transmission Date: 20141002
  Serious: Yes (Hospitalization, Other)
  Sender: FDA-Public Use
  Company Number: None

PATIENT
  Age: 24 Year
  Sex: Female
  Weight: 74.39 kg

DRUGS (1)
  1. ODANSETRON [Suspect]
     Indication: VOMITING IN PREGNANCY
     Dosage: EVERY 8 HOURS TAKEN UNDER TONGUE
     Dates: start: 20140106, end: 20140123

REACTIONS (5)
  - Dizziness [None]
  - Chest pain [None]
  - Vertigo [None]
  - Palpitations [None]
  - Dyspnoea [None]
